FAERS Safety Report 5225047-7 (Version None)
Quarter: 2007Q1

REPORT INFORMATION
  Report Type: 
  Country: None (occurrence: None)
  Receive Date: 20070131
  Receipt Date: 20070125
  Transmission Date: 20070707
  Serious: Yes (Hospitalization)
  Sender: FDA-Public Use
  Company Number: FR-GLAXOSMITHKLINE-B0456239A

PATIENT
  Age: 85 Year
  Sex: Male
  Weight: 67 kg

DRUGS (12)
  1. AUGMENTIN '125' [Suspect]
     Dosage: 1G THREE TIMES PER DAY
     Route: 042
     Dates: start: 20061218, end: 20061219
  2. CIPROFLOXACIN [Suspect]
     Dosage: 200MG VARIABLE DOSE
     Route: 042
     Dates: start: 20061218, end: 20061227
  3. MEMANTINE HCL [Concomitant]
     Route: 065
     Dates: start: 20050401
  4. ATHYMIL [Concomitant]
     Route: 065
     Dates: start: 20051101
  5. LEXOMIL [Concomitant]
     Route: 065
     Dates: start: 20060501
  6. ZYPREXA [Concomitant]
     Route: 065
     Dates: start: 20060701
  7. TEMESTA [Concomitant]
     Route: 065
     Dates: start: 20060701
  8. PARACETAMOL [Concomitant]
     Route: 065
  9. ROCEPHIN [Concomitant]
     Dosage: 2G PER DAY
     Route: 042
     Dates: start: 20061219, end: 20070102
  10. HEPARIN [Concomitant]
     Route: 065
     Dates: start: 20061219, end: 20061227
  11. CALCIPARINE [Concomitant]
     Route: 065
  12. LASIX [Concomitant]
     Route: 042
     Dates: start: 20061220

REACTIONS (2)
  - MYOGLOBIN BLOOD INCREASED [None]
  - RENAL FAILURE [None]
